FAERS Safety Report 6845605-3 (Version None)
Quarter: 2010Q3

REPORT INFORMATION
  Report Type: 
  Country: None (occurrence: None)
  Receive Date: 20100715
  Receipt Date: 20070825
  Transmission Date: 20110219
  Serious: No
  Sender: FDA-Public Use
  Company Number: US-PFIZER INC-2007071115

PATIENT
  Sex: Female
  Weight: 89.5 kg

DRUGS (6)
  1. CHANTIX [Suspect]
     Indication: SMOKING CESSATION THERAPY
     Route: 048
     Dates: start: 20070801
  2. ANTIHYPERTENSIVES [Concomitant]
     Indication: HYPERTENSION
  3. CHOLESTEROL- AND TRIGLYCERIDE REDUCERS [Concomitant]
     Indication: BLOOD CHOLESTEROL INCREASED
  4. ANALGESICS [Concomitant]
     Indication: PAIN
  5. DRUG, UNSPECIFIED [Concomitant]
     Indication: NEURALGIA
  6. MUSCLE RELAXANTS [Concomitant]

REACTIONS (1)
  - MALAISE [None]
